FAERS Safety Report 9018382 (Version 1)
Quarter: 2013Q1

REPORT INFORMATION
  Report Type: Spontaneous
  Country: US (occurrence: None)
  Receive Date: 20130111
  Receipt Date: 20130111
  Transmission Date: 20140127
  Serious: Yes (Hospitalization)
  Sender: FDA-Public Use
  Company Number: None

PATIENT
  Age: 68 Year
  Sex: Male
  Weight: 64.6 kg

DRUGS (14)
  1. PLAVIX [Suspect]
     Indication: TRANSIENT ISCHAEMIC ATTACK
     Dosage: 75MG DAILY PO
     Route: 048
  2. PLAVIX [Suspect]
     Indication: EYE DISORDER
     Dosage: 75MG DAILY PO
     Route: 048
  3. COUMADIN [Suspect]
     Dosage: 2.5MG / 5 MG MTH/SSTWF PO
     Route: 048
  4. COUMADIN [Suspect]
     Dosage: 2.5MG / 5 MG MTH/SSTWF PO
     Route: 048
  5. COREG [Concomitant]
  6. FENOFIBRATE [Concomitant]
  7. PROZAC [Concomitant]
  8. LASIX [Concomitant]
  9. LISINOPRIL [Concomitant]
  10. OXYCODONE [Concomitant]
  11. KCL [Concomitant]
  12. CRESTOR [Concomitant]
  13. ALDACTONE [Concomitant]
  14. PRILOSEC [Concomitant]

REACTIONS (2)
  - Faeces discoloured [None]
  - International normalised ratio increased [None]
